FAERS Safety Report 5852604-7 (Version None)
Quarter: 2008Q3

REPORT INFORMATION
  Report Type: 
  Country: None (occurrence: None)
  Receive Date: 20080821
  Receipt Date: 20080818
  Transmission Date: 20090109
  Serious: Yes (Disabling)
  Sender: FDA-Public Use
  Company Number: A0715618B

PATIENT
  Age: 34 Year
  Sex: Female
  Weight: 49.6 kg

DRUGS (2)
  1. PAZOPANIB [Suspect]
     Dosage: 800MG PER DAY
     Route: 048
     Dates: start: 20071221
  2. LAPATINIB [Suspect]
     Dosage: 1500MG PER DAY
     Route: 048
     Dates: start: 20071221

REACTIONS (2)
  - DISEASE PROGRESSION [None]
  - FORCED EXPIRATORY VOLUME DECREASED [None]
